FAERS Safety Report 15338112 (Version 1)
Quarter: 2018Q3

REPORT INFORMATION
  Report Type: Report from Study
  Country: TW (occurrence: TW)
  Receive Date: 20180831
  Receipt Date: 20180831
  Transmission Date: 20181010
  Serious: Yes (Life-Threatening, Other)
  Sender: FDA-Public Use
  Company Number: TW-ACCORD-071182

PATIENT
  Age: 57 Year
  Sex: Male

DRUGS (2)
  1. CISPLATIN. [Suspect]
     Active Substance: CISPLATIN
     Indication: NASOPHARYNGEAL CANCER
     Dosage: AFTER THE FIRST COURSE OF INDUCTION CHEMOTHERAPY
  2. FLUOROURACIL. [Suspect]
     Active Substance: FLUOROURACIL
     Indication: NASOPHARYNGEAL CANCER
     Dosage: AFTER THE FIRST COURSE OF INDUCTION CHEMOTHERAPY

REACTIONS (2)
  - Acute kidney injury [Recovered/Resolved]
  - Hyperglycaemic hyperosmolar nonketotic syndrome [Recovering/Resolving]
